FAERS Safety Report 13853109 (Version 3)
Quarter: 2019Q1

REPORT INFORMATION
  Report Type: Spontaneous
  Country: CA (occurrence: CA)
  Receive Date: 20170810
  Receipt Date: 20190302
  Transmission Date: 20190417
  Serious: Yes (Other)
  Sender: FDA-Public Use
  Company Number: CA-AUROBINDO-AUR-APL-2017-38712

PATIENT

DRUGS (56)
  1. ROSUVASTATIN TABLET [Suspect]
     Active Substance: ROSUVASTATIN
     Dosage: UNK
     Route: 065
  2. DIMENHYDRINATE. [Suspect]
     Active Substance: DIMENHYDRINATE
     Indication: NAUSEA
     Dosage: 50 MG, UNK
     Route: 065
  3. TRAZODONE [Suspect]
     Active Substance: TRAZODONE HYDROCHLORIDE
     Indication: INSOMNIA
     Dosage: 50 MG, ONCE A DAY
     Route: 048
  4. ACTONEL [Suspect]
     Active Substance: RISEDRONATE SODIUM
     Dosage: 150 MILLIGRAM, 1 EVERY MONTH
     Route: 065
  5. ACTONEL [Suspect]
     Active Substance: RISEDRONATE SODIUM
     Dosage: UNK
     Route: 065
  6. APO-MIRTAZAPINE [Suspect]
     Active Substance: MIRTAZAPINE
     Indication: DEPRESSED MOOD
     Dosage: 7.5 MILLIGRAM, ONCE A DAY
     Route: 065
  7. APO-TRAZODONE [Suspect]
     Active Substance: TRAZODONE HYDROCHLORIDE
     Indication: INSOMNIA
     Dosage: 25 MILLIGRAM
     Route: 065
  8. BETAHISTINE [Suspect]
     Active Substance: BETAHISTINE
     Dosage: UNK
     Route: 065
  9. CITALOPRAM [Suspect]
     Active Substance: CITALOPRAM HYDROBROMIDE
     Indication: DEPRESSED MOOD
     Dosage: 5 MG, ONCE A DAY
     Route: 065
  10. TRAZODONE [Suspect]
     Active Substance: TRAZODONE HYDROCHLORIDE
     Dosage: 50 MG, UNK
     Route: 048
  11. LEVOTHYROXINE SODIUM. [Suspect]
     Active Substance: LEVOTHYROXINE SODIUM
     Indication: HYPOTHYROIDISM
     Dosage: 0.05 MG, ONCE A DAY
     Route: 065
  12. CARBIDOPA;LEVODOPA [Suspect]
     Active Substance: CARBIDOPA\LEVODOPA
     Indication: PARKINSON^S DISEASE
     Dosage: UNK, 3 TIMES A DAY
     Route: 065
  13. ACTONEL [Suspect]
     Active Substance: RISEDRONATE SODIUM
     Dosage: 5 MILLIGRAM
     Route: 065
  14. APO-LEVOCARB CR [Suspect]
     Active Substance: CARBIDOPA\LEVODOPA
     Indication: PARKINSON^S DISEASE
     Dosage: UNK, THREE TIMES A DAY
     Route: 065
  15. APO-METOCLOP [Suspect]
     Active Substance: METOCLOPRAMIDE HYDROCHLORIDE
     Indication: DIVERTICULITIS
     Dosage: 10 MILLIGRAM, 3 TIMES A DAY
     Route: 065
  16. BETAHISTINE [Suspect]
     Active Substance: BETAHISTINE
     Dosage: 24 MILLIGRAM, ONCE A DAY (8MG 3 TIMES A DAY)
     Route: 065
  17. CITALOPRAM [Suspect]
     Active Substance: CITALOPRAM HYDROBROMIDE
     Dosage: UNK, ONCE A DAY
     Route: 065
  18. CANDESARTAN TABLETS [Suspect]
     Active Substance: CANDESARTAN
     Dosage: 4 DOSAGE FORM, ONCE A DAY
     Route: 065
  19. CANDESARTAN TABLETS [Suspect]
     Active Substance: CANDESARTAN
     Dosage: 4 MG, ONCE A DAY
     Route: 065
  20. PANTOPRAZOLE 40MG [Suspect]
     Active Substance: PANTOPRAZOLE SODIUM
     Indication: NAUSEA
     Dosage: 40 MG, ONCE A DAY
     Route: 048
  21. BISOPROLOL [Suspect]
     Active Substance: BISOPROLOL
     Dosage: UNK, ONCE A DAY
     Route: 065
  22. TIMOLOL SANDOZ [Suspect]
     Active Substance: TIMOLOL
     Indication: GLAUCOMA
     Dosage: UNK, TWO TIMES A DAY
     Route: 047
  23. TIMOLOL SANDOZ [Suspect]
     Active Substance: TIMOLOL
     Dosage: 1 DOSAGE FORM, TWO TIMES A DAY
     Route: 047
  24. ACTONEL [Suspect]
     Active Substance: RISEDRONATE SODIUM
     Indication: OSTEOPOROSIS
     Dosage: 150 MILLIGRAM, ONCE A DAY
     Route: 065
  25. APO CANDESARTAN [Suspect]
     Active Substance: CANDESARTAN CILEXETIL
     Indication: HYPERTENSION
     Dosage: 4 MILLIGRAM, ONCE A DAY
     Route: 065
  26. APO RISEDRONATE [Suspect]
     Active Substance: RISEDRONATE SODIUM
     Indication: OSTEOPOROSIS
     Dosage: 150 MILLIGRAM
     Route: 065
  27. APO ROSUVASTATIN [Suspect]
     Active Substance: ROSUVASTATIN CALCIUM
     Indication: HAEMORRHAGIC STROKE
     Dosage: 20 MILLIGRAM, ONCE A DAY
     Route: 065
  28. REACTINE [CETIRIZINE HYDROCHLORIDE] [Suspect]
     Active Substance: CETIRIZINE HYDROCHLORIDE
     Indication: EYE PRURITUS
     Dosage: 20 MG, ONCE A DAY
     Route: 065
  29. APO-BISOPROLOL [Suspect]
     Active Substance: BISOPROLOL FUMARATE
     Indication: PRODUCT USED FOR UNKNOWN INDICATION
     Dosage: 1 DOSAGE FORM, ONCE A DAY
     Route: 065
  30. APO-TRAZODONE [Suspect]
     Active Substance: TRAZODONE HYDROCHLORIDE
     Dosage: 50 MILLIGRAM, ONCE A DAY
     Route: 065
  31. BETAHISTINE [Suspect]
     Active Substance: BETAHISTINE
     Indication: VERTIGO
     Dosage: 8 MG, 2/WEEK
     Route: 065
  32. BETAHISTINE [Suspect]
     Active Substance: BETAHISTINE
     Dosage: 8 MG, BID
     Route: 065
  33. ROSUVASTATIN TABLET [Suspect]
     Active Substance: ROSUVASTATIN
     Indication: HAEMORRHAGIC STROKE
     Dosage: 20 MILLIGRAM, ONCE A DAY
     Route: 065
  34. BISOPROLOL [Suspect]
     Active Substance: BISOPROLOL
     Dosage: UNK
     Route: 065
  35. METOCLOPRAMIDE HYDROCHLORIDE. [Suspect]
     Active Substance: METOCLOPRAMIDE HYDROCHLORIDE
     Indication: DIVERTICULITIS
     Dosage: 10 MG, BID
     Route: 065
  36. TRAZODONE [Suspect]
     Active Substance: TRAZODONE HYDROCHLORIDE
     Dosage: 25 MG, UNK
     Route: 048
  37. APO-LEVOCARB CR [Suspect]
     Active Substance: CARBIDOPA\LEVODOPA
     Dosage: 2 DOSAGE FORM, 3 TIMES A DAY
     Route: 065
  38. APO-LEVOCARB [Suspect]
     Active Substance: CARBIDOPA\LEVODOPA
     Indication: PARKINSON^S DISEASE
     Dosage: 2 DOSAGE FORM, 3 TIMES A DAY
     Route: 065
  39. BETAHISTINE [Suspect]
     Active Substance: BETAHISTINE
     Dosage: 8 MG, UNK
     Route: 065
  40. CANDESARTAN HCT [Suspect]
     Active Substance: CANDESARTAN CILEXETIL\HYDROCHLOROTHIAZIDE
     Indication: HYPERTENSION
     Dosage: UNK, ONCE A DAY
     Route: 065
  41. BISOPROLOL [Suspect]
     Active Substance: BISOPROLOL
     Indication: PRODUCT USED FOR UNKNOWN INDICATION
     Dosage: 1.25 MG, ONCE A DAY
     Route: 065
  42. VITAMIN D [Suspect]
     Active Substance: CHOLECALCIFEROL
     Indication: OSTEOPOROSIS
     Dosage: 1000 IU, ONCE A DAY
     Route: 065
  43. ACTONEL [Suspect]
     Active Substance: RISEDRONATE SODIUM
     Dosage: UNK
     Route: 065
  44. APO-CITALOPRAM [Suspect]
     Active Substance: CITALOPRAM HYDROBROMIDE
     Indication: DEPRESSED MOOD
     Dosage: UNK, ONCE A DAY
     Route: 065
  45. BETAHISTINE [Suspect]
     Active Substance: BETAHISTINE
     Dosage: 8 MILLIGRAM, ONCE A DAY
     Route: 065
  46. CANDESARTAN TABLETS [Suspect]
     Active Substance: CANDESARTAN
     Indication: HYPERTENSION
     Dosage: 4 MG, ONCE A DAY
     Route: 048
  47. MIRTAZAPINE ORODISPERSABLE TABLET [Suspect]
     Active Substance: MIRTAZAPINE
     Dosage: 7.5 MG, ONCE A DAY
     Route: 065
  48. METOCLOPRAMIDE HYDROCHLORIDE. [Suspect]
     Active Substance: METOCLOPRAMIDE HYDROCHLORIDE
     Dosage: 30 MILLIGRAM, ONCE A DAY (10 MG, THREE TIMES A DAY)
     Route: 065
  49. REACTINE [CETIRIZINE HYDROCHLORIDE] [Suspect]
     Active Substance: CETIRIZINE HYDROCHLORIDE
     Dosage: UNK
     Route: 065
  50. ACTONEL [Suspect]
     Active Substance: RISEDRONATE SODIUM
     Dosage: 150 MILLIGRAM
     Route: 065
  51. APO-CETIRIZINE [Suspect]
     Active Substance: CETIRIZINE HYDROCHLORIDE
     Indication: EYE PRURITUS
     Dosage: 20 MILLIGRAM, ONCE A DAY
     Route: 065
  52. APO TIMOP [Suspect]
     Active Substance: TIMOLOL MALEATE
     Indication: GLAUCOMA
     Dosage: 1 DOSAGE FORM, TWO TIMES A DAY
     Route: 047
  53. BETAHISTINE [Suspect]
     Active Substance: BETAHISTINE
     Dosage: 8 MG, UNK
     Route: 065
  54. CANDESARTAN HCT [Suspect]
     Active Substance: CANDESARTAN CILEXETIL\HYDROCHLOROTHIAZIDE
     Dosage: 4 MILLIGRAM, ONCE A DAY
     Route: 065
  55. VITAMIN D [Suspect]
     Active Substance: CHOLECALCIFEROL
     Dosage: UNK, ONCE A DAY
     Route: 065
  56. VITAMIN D [Suspect]
     Active Substance: CHOLECALCIFEROL
     Dosage: 1000 DOSAGE FORM, ONCE A DAY
     Route: 065

REACTIONS (21)
  - Parkinson^s disease [Recovered/Resolved]
  - Vertigo [Recovered/Resolved]
  - Condition aggravated [Recovered/Resolved]
  - Vitamin B12 decreased [Recovered/Resolved]
  - Eye pruritus [Recovered/Resolved]
  - Nausea [Recovered/Resolved]
  - Fall [Recovered/Resolved]
  - Drug ineffective [Recovered/Resolved]
  - Hypotension [Recovered/Resolved]
  - Abdominal distension [Recovered/Resolved]
  - Decreased appetite [Recovered/Resolved]
  - Dry mouth [Recovered/Resolved]
  - Constipation [Recovered/Resolved]
  - Vomiting [Recovered/Resolved]
  - Hypersensitivity [Recovered/Resolved]
  - Fatigue [Recovered/Resolved]
  - Depressed mood [Recovered/Resolved]
  - Loss of personal independence in daily activities [Recovered/Resolved]
  - Lacrimation increased [Recovered/Resolved]
  - Dizziness [Recovered/Resolved]
  - Product use in unapproved indication [Not Recovered/Not Resolved]
